FAERS Safety Report 24857194 (Version 1)
Quarter: 2025Q1

REPORT INFORMATION
  Report Type: Spontaneous
  Country: US (occurrence: None)
  Receive Date: 20250117
  Receipt Date: 20250117
  Transmission Date: 20250409
  Serious: Yes (Death)
  Sender: FDA-CTU
  Company Number: None

PATIENT
  Age: 84 Year
  Sex: Female

DRUGS (8)
  1. PROLIA [Suspect]
     Active Substance: DENOSUMAB
     Indication: Osteoporosis
     Route: 058
     Dates: start: 20240725
  2. HYDRALAZINE [Concomitant]
     Active Substance: HYDRALAZINE HYDROCHLORIDE
     Dates: start: 20220314, end: 20250106
  3. CALCITRIOL [Concomitant]
     Active Substance: CALCITRIOL
     Dates: start: 20211101
  4. CARVEDILOL [Concomitant]
     Active Substance: CARVEDILOL
     Dates: start: 20220222, end: 20250106
  5. CYCLOBENZAPRINE [Concomitant]
     Active Substance: CYCLOBENZAPRINE
     Dates: start: 20220727, end: 20250106
  6. PREGABALIN [Concomitant]
     Active Substance: PREGABALIN
     Dates: start: 20230810, end: 20250106
  7. TRAMADOL [Concomitant]
     Active Substance: TRAMADOL
     Dates: start: 20221122, end: 20250106
  8. XIIDRA [Concomitant]
     Active Substance: LIFITEGRAST
     Dates: start: 20240806, end: 20250106

REACTIONS (1)
  - Death [None]

NARRATIVE: CASE EVENT DATE: 20250106
